FAERS Safety Report 23695866 (Version 2)
Quarter: 2024Q2

REPORT INFORMATION
  Report Type: Spontaneous
  Country: JM (occurrence: JM)
  Receive Date: 20240402
  Receipt Date: 20240430
  Transmission Date: 20240715
  Serious: Yes (Death)
  Sender: FDA-Public Use
  Company Number: JM-002147023-NVSC2024JM069560

PATIENT
  Age: 65 Year
  Sex: Female
  Weight: 40.4 kg

DRUGS (2)
  1. TASIGNA [Suspect]
     Active Substance: NILOTINIB
     Indication: Chronic myeloid leukaemia
     Dosage: 200 MG, QD
     Route: 065
     Dates: start: 20240223, end: 20240229
  2. TASIGNA [Suspect]
     Active Substance: NILOTINIB
     Dosage: 400 MG, QD
     Route: 065
     Dates: start: 20240314

REACTIONS (6)
  - Blast crisis in myelogenous leukaemia [Fatal]
  - Septic shock [Fatal]
  - Pneumonia aspiration [Fatal]
  - Tumour lysis syndrome [Fatal]
  - Leukocytosis [Fatal]
  - Anaemia of chronic disease [Fatal]

NARRATIVE: CASE EVENT DATE: 20240320
